FAERS Safety Report 19808730 (Version 4)
Quarter: 2022Q2

REPORT INFORMATION
  Report Type: Spontaneous
  Country: US (occurrence: US)
  Receive Date: 20210909
  Receipt Date: 20220603
  Transmission Date: 20220720
  Serious: No
  Sender: FDA-Public Use
  Company Number: US-PFIZER INC-202101169428

PATIENT
  Age: 70 Year
  Sex: Female

DRUGS (3)
  1. PREGABALIN [Suspect]
     Active Substance: PREGABALIN
     Indication: Pain
     Dosage: UNK
  2. PREGABALIN [Suspect]
     Active Substance: PREGABALIN
     Indication: Nerve injury
  3. PREGABALIN [Suspect]
     Active Substance: PREGABALIN
     Indication: Peripheral nerve injury

REACTIONS (1)
  - Drug ineffective [Unknown]
